FAERS Safety Report 22203592 (Version 26)
Quarter: 2025Q2

REPORT INFORMATION
  Report Type: Spontaneous
  Country: US (occurrence: US)
  Receive Date: 20230412
  Receipt Date: 20250522
  Transmission Date: 20250716
  Serious: Yes (Other)
  Sender: KARYOPHARM THERAPEUTICS
  Company Number: US-KARYOPHARM-2023KPT001041

PATIENT

DRUGS (24)
  1. XPOVIO [Suspect]
     Active Substance: SELINEXOR
     Indication: Plasma cell myeloma recurrent
     Route: 048
     Dates: start: 20231207, end: 202312
  2. XPOVIO [Suspect]
     Active Substance: SELINEXOR
     Route: 048
     Dates: start: 20240104, end: 202401
  3. XPOVIO [Suspect]
     Active Substance: SELINEXOR
     Route: 048
     Dates: start: 20240118, end: 202402
  4. XPOVIO [Suspect]
     Active Substance: SELINEXOR
     Route: 048
     Dates: start: 20241024, end: 202501
  5. XPOVIO [Suspect]
     Active Substance: SELINEXOR
     Route: 048
  6. XPOVIO [Suspect]
     Active Substance: SELINEXOR
     Route: 048
     Dates: start: 2023, end: 202310
  7. XPOVIO [Suspect]
     Active Substance: SELINEXOR
     Route: 048
     Dates: start: 20230315
  8. XPOVIO [Suspect]
     Active Substance: SELINEXOR
     Route: 048
     Dates: start: 202311, end: 202312
  9. XPOVIO [Suspect]
     Active Substance: SELINEXOR
     Route: 048
     Dates: start: 2024
  10. XPOVIO [Suspect]
     Active Substance: SELINEXOR
     Route: 048
     Dates: start: 202311, end: 202311
  11. XPOVIO [Suspect]
     Active Substance: SELINEXOR
     Route: 048
     Dates: start: 2023
  12. AMOXICILLIN [Concomitant]
     Active Substance: AMOXICILLIN
  13. DEXAMETHASONE [Concomitant]
     Active Substance: DEXAMETHASONE
  14. METFORMIN [Concomitant]
     Active Substance: METFORMIN HYDROCHLORIDE
     Indication: Diabetes mellitus
  15. ASPIRIN [Concomitant]
     Active Substance: ASPIRIN
     Indication: Coagulopathy
  16. ZOFRAN [Concomitant]
     Active Substance: ONDANSETRON HYDROCHLORIDE
  17. OXYCODONE [Concomitant]
     Active Substance: OXYCODONE
  18. SULFAMETHOXAZOLE AND TRIMETHOPRIM [Concomitant]
     Active Substance: SULFAMETHOXAZOLE\TRIMETHOPRIM
  19. LOMOTIL [Concomitant]
     Active Substance: ATROPINE SULFATE\DIPHENOXYLATE HYDROCHLORIDE
  20. PROCHLORPERAZINE [Concomitant]
     Active Substance: PROCHLORPERAZINE
  21. BACTRIM DS [Concomitant]
     Active Substance: SULFAMETHOXAZOLE\TRIMETHOPRIM
  22. IBUPROFEN [Concomitant]
     Active Substance: IBUPROFEN
  23. TYLENOL [Concomitant]
     Active Substance: ACETAMINOPHEN
  24. SULFAMETHOXAZOLE [Concomitant]
     Active Substance: SULFAMETHOXAZOLE

REACTIONS (23)
  - Cataract [Not Recovered/Not Resolved]
  - Muscle spasms [Not Recovered/Not Resolved]
  - Taste disorder [Recovering/Resolving]
  - Salivary hypersecretion [Recovering/Resolving]
  - Headache [Not Recovered/Not Resolved]
  - Fluid intake reduced [Unknown]
  - Peripheral coldness [Recovering/Resolving]
  - Nasopharyngitis [Not Recovered/Not Resolved]
  - Oropharyngeal pain [Not Recovered/Not Resolved]
  - Rhinorrhoea [Unknown]
  - Immunodeficiency [Unknown]
  - Laboratory test abnormal [Unknown]
  - Sinusitis [Unknown]
  - Pruritus [Unknown]
  - Headache [Unknown]
  - Nausea [Not Recovered/Not Resolved]
  - Decreased appetite [Not Recovered/Not Resolved]
  - Weight decreased [Recovering/Resolving]
  - Dizziness [Not Recovered/Not Resolved]
  - Confusional state [Not Recovered/Not Resolved]
  - Asthenia [Not Recovered/Not Resolved]
  - Diarrhoea [Unknown]
  - Inappropriate schedule of product administration [Unknown]

NARRATIVE: CASE EVENT DATE: 20230101
